FAERS Safety Report 7307167-6 (Version None)
Quarter: 2011Q1

REPORT INFORMATION
  Report Type: 
  Country: None (occurrence: None)
  Receive Date: 20110223
  Receipt Date: 20110211
  Transmission Date: 20110831
  Serious: Yes (Other)
  Sender: FDA-Public Use
  Company Number: US-RB-021136-11

PATIENT
  Sex: Female

DRUGS (5)
  1. VITAMIN D [Concomitant]
  2. VITAMIN C SUPPLEMENTS [Concomitant]
  3. MUCINEX [Suspect]
     Dosage: PATIENT VARIES BETWEEN TAKING ONE OT TWO TABLETS PER DOSE ONCE DAILY IN THE AFTERNOON
     Route: 048
  4. SYNTHROID [Concomitant]
     Dosage: TAKEN FOR THE PAST YEAR
  5. DIOVAN [Concomitant]
     Dosage: TAKEN FOR THE PAST 6 MONTHS

REACTIONS (3)
  - HEADACHE [None]
  - BLOOD PRESSURE INCREASED [None]
  - EXPIRED DRUG ADMINISTERED [None]
